FAERS Safety Report 9445390 (Version 2)
Quarter: 2013Q4

REPORT INFORMATION
  Report Type: Report from Study
  Country: DE (occurrence: DE)
  Receive Date: 20130807
  Receipt Date: 20131105
  Transmission Date: 20140711
  Serious: Yes (Hospitalization)
  Sender: FDA-Public Use
  Company Number: DE-JNJFOC-20130718331

PATIENT
  Age: 75 Year
  Sex: Female

DRUGS (8)
  1. REMICADE [Suspect]
     Indication: RHEUMATOID ARTHRITIS
     Route: 042
     Dates: start: 20120917, end: 20120917
  2. REMICADE [Suspect]
     Indication: RHEUMATOID ARTHRITIS
     Route: 042
     Dates: start: 201105
  3. GOLIMUMAB [Suspect]
     Indication: RHEUMATOID ARTHRITIS
     Route: 058
     Dates: start: 201009, end: 201102
  4. HYDROXYCHLOROQUINE [Concomitant]
     Indication: RHEUMATOID ARTHRITIS
     Route: 065
     Dates: end: 201210
  5. HYDROXYCHLOROQUINE [Concomitant]
     Indication: RHEUMATOID ARTHRITIS
     Dosage: DOSE: 200 (UNITS UNSPECIFIED)
     Route: 065
     Dates: start: 201002
  6. BELOC ZOK [Concomitant]
     Dosage: 1/2 DAILY
     Route: 065
     Dates: start: 2000
  7. HCT BETA [Concomitant]
     Dosage: 1/2 DAILY
     Route: 065
  8. L-THYROXIN [Concomitant]
     Route: 065
     Dates: start: 1989

REACTIONS (1)
  - Malignant anorectal neoplasm [Recovered/Resolved]
